FAERS Safety Report 25665352 (Version 2)
Quarter: 2025Q3

REPORT INFORMATION
  Report Type: Spontaneous
  Country: EU (occurrence: EU)
  Receive Date: 20250811
  Receipt Date: 20250827
  Transmission Date: 20251021
  Serious: Yes (Life-Threatening)
  Sender: GRIFOLS
  Company Number: None

PATIENT
  Age: 87 Year
  Sex: Male
  Weight: 80 kg

DRUGS (5)
  1. FLEBOGAMMA DIF [Suspect]
     Active Substance: HUMAN IMMUNOGLOBULIN G
     Indication: Myasthenia gravis crisis
     Dosage: 30 GRAM, QD
     Route: 042
     Dates: start: 20250722, end: 20250723
  2. FLEBOGAMMA DIF [Suspect]
     Active Substance: HUMAN IMMUNOGLOBULIN G
     Indication: Off label use
  3. BISOPROLOL FUMARATE [Concomitant]
     Active Substance: BISOPROLOL FUMARATE
     Route: 048
  4. VERQUVO [Concomitant]
     Active Substance: VERICIGUAT
     Route: 048
  5. ASPIRIN [Concomitant]
     Active Substance: ASPIRIN
     Dosage: 100 MILLIGRAM, QD
     Route: 048

REACTIONS (2)
  - Hypotension [Recovering/Resolving]
  - Oxygen saturation decreased [Recovering/Resolving]

NARRATIVE: CASE EVENT DATE: 20250722
